FAERS Safety Report 16314000 (Version 1)
Quarter: 2019Q2

REPORT INFORMATION
  Report Type: Spontaneous
  Country: US (occurrence: US)
  Receive Date: 20190514
  Receipt Date: 20190514
  Transmission Date: 20190711
  Serious: No
  Sender: FDA-Public Use
  Company Number: None

PATIENT
  Age: 9 Year
  Sex: Male
  Weight: 31.5 kg

DRUGS (3)
  1. METHYLPHENIDATE. [Suspect]
     Active Substance: METHYLPHENIDATE
     Indication: ATTENTION DEFICIT/HYPERACTIVITY DISORDER
     Dosage: ?          QUANTITY:1 TABLET(S);?
     Route: 048
     Dates: start: 20190403, end: 20190514
  2. TRAMADOL. [Concomitant]
     Active Substance: TRAMADOL
  3. DAILY CHILDRENS MULTI VITAMIN [Concomitant]

REACTIONS (7)
  - Amnesia [None]
  - Insurance issue [None]
  - Product substitution issue [None]
  - Educational problem [None]
  - Drug ineffective [None]
  - Cognitive disorder [None]
  - Psychomotor hyperactivity [None]

NARRATIVE: CASE EVENT DATE: 20190403
